FAERS Safety Report 5309481-2 (Version None)
Quarter: 2007Q2

REPORT INFORMATION
  Report Type: 
  Country: None (occurrence: None)
  Receive Date: 20070427
  Receipt Date: 20070423
  Transmission Date: 20071010
  Serious: Yes (Other)
  Sender: FDA-Public Use
  Company Number: AU-BRISTOL-MYERS SQUIBB COMPANY-13759253

PATIENT
  Age: 77 Year
  Sex: Female

DRUGS (4)
  1. ACETYLSALICYLIC ACID SRT [Suspect]
  2. IRBESARTAN [Suspect]
  3. ATORVASTATIN CALCIUM [Suspect]
  4. TELMISARTAN [Suspect]

REACTIONS (5)
  - DRUG ERUPTION [None]
  - DRUG HYPERSENSITIVITY [None]
  - SKIN LESION [None]
  - VULVAR EROSION [None]
  - VULVITIS [None]
